FAERS Safety Report 6834551-7 (Version None)
Quarter: 2010Q3

REPORT INFORMATION
  Report Type: 
  Country: None (occurrence: None)
  Receive Date: 20100712
  Receipt Date: 20070416
  Transmission Date: 20110219
  Serious: No
  Sender: FDA-Public Use
  Company Number: US-PFIZER INC-2007030838

PATIENT
  Sex: Male
  Weight: 88 kg

DRUGS (3)
  1. CHANTIX [Suspect]
     Indication: SMOKING CESSATION THERAPY
     Route: 048
     Dates: start: 20070411, end: 20070412
  2. METOPROLOL [Concomitant]
  3. PRAVASTATIN [Concomitant]

REACTIONS (4)
  - COUGH [None]
  - MALAISE [None]
  - NASOPHARYNGITIS [None]
  - RHINORRHOEA [None]
